FAERS Safety Report 12345599 (Version 2)
Quarter: 2016Q2

REPORT INFORMATION
  Report Type: Spontaneous
  Country: US (occurrence: US)
  Receive Date: 20160509
  Receipt Date: 20160610
  Transmission Date: 20160815
  Serious: No
  Sender: FDA-Public Use
  Company Number: PHEH2016US010985

PATIENT
  Age: 4 Year
  Sex: Male
  Weight: 14.06 kg

DRUGS (4)
  1. TRILEPTAL [Suspect]
     Active Substance: OXCARBAZEPINE
     Indication: SEIZURE
     Dosage: 60 MG, QD
     Route: 065
  2. KEPPRA [Suspect]
     Active Substance: LEVETIRACETAM
     Dosage: 1 ML, BID
     Route: 048
     Dates: start: 20160413, end: 20160427
  3. TRILEPTAL [Suspect]
     Active Substance: OXCARBAZEPINE
     Dosage: 2 ML, BID
     Route: 048
     Dates: start: 20160422
  4. KEPPRA [Suspect]
     Active Substance: LEVETIRACETAM
     Indication: SEIZURE
     Dosage: 150 MG, BID (300MG/5ML)
     Route: 048

REACTIONS (1)
  - Faeces soft [Recovered/Resolved]

NARRATIVE: CASE EVENT DATE: 20160422
